FAERS Safety Report 15001592 (Version 1)
Quarter: 2018Q2

REPORT INFORMATION
  Report Type: Spontaneous
  Country: US (occurrence: US)
  Receive Date: 20180612
  Receipt Date: 20180612
  Transmission Date: 20180711
  Serious: No
  Sender: FDA-Public Use
  Company Number: US-009507513-1806USA001847

PATIENT
  Age: 11 Year
  Sex: Female

DRUGS (1)
  1. ELOCON [Suspect]
     Active Substance: MOMETASONE FUROATE
     Indication: ALOPECIA UNIVERSALIS
     Dosage: 0.1 % DAILY MONDAY THROUGH FRIDAY FOR 5 MONTHS
     Route: 061

REACTIONS (1)
  - Product use in unapproved indication [Unknown]
